FAERS Safety Report 5453728-9 (Version None)
Quarter: 2007Q3

REPORT INFORMATION
  Report Type: 
  Country: None (occurrence: None)
  Receive Date: 20070917
  Receipt Date: 20070913
  Transmission Date: 20080115
  Serious: Yes (Disabling, Other)
  Sender: FDA-Public Use
  Company Number: JP-BRISTOL-MYERS SQUIBB COMPANY-13899729

PATIENT
  Age: 65 Year
  Sex: Female

DRUGS (1)
  1. TAXOL [Suspect]
     Indication: BREAST CANCER
     Route: 041
     Dates: start: 20070719, end: 20070719

REACTIONS (3)
  - ABDOMINAL ABSCESS [None]
  - LARGE INTESTINE PERFORATION [None]
  - SICK SINUS SYNDROME [None]
